FAERS Safety Report 17485328 (Version 2)
Quarter: 2020Q2

REPORT INFORMATION
  Report Type: Spontaneous
  Country: US (occurrence: US)
  Receive Date: 20200302
  Receipt Date: 20200408
  Transmission Date: 20200713
  Serious: No
  Sender: FDA-Public Use
  Company Number: US-009507513-2002USA005236

PATIENT
  Sex: Female
  Weight: 72.11 kg

DRUGS (1)
  1. NEXPLANON [Suspect]
     Active Substance: ETONOGESTREL
     Indication: CONTRACEPTION
     Dosage: 68 MG ROD EVERY 3 YEARS
     Route: 059
     Dates: start: 20191002

REACTIONS (2)
  - Pain in extremity [Not Recovered/Not Resolved]
  - Device kink [Not Recovered/Not Resolved]

NARRATIVE: CASE EVENT DATE: 2019
